FAERS Safety Report 24194159 (Version 1)
Quarter: 2024Q3

REPORT INFORMATION
  Report Type: Spontaneous
  Country: US (occurrence: None)
  Receive Date: 20240808
  Receipt Date: 20240808
  Transmission Date: 20241017
  Serious: Yes (Death)
  Sender: Public
  Company Number: None

PATIENT
  Age: 82 Year
  Sex: Female

DRUGS (9)
  1. PROLIA [Suspect]
     Active Substance: DENOSUMAB
     Indication: Senile osteoporosis
     Dosage: 60 MG/ML EVERY 6 MONTHS SUBCUTANEOUS
     Route: 058
     Dates: start: 20230206, end: 20240808
  2. QUINAPRIL [Concomitant]
  3. ATORVASTATIN [Concomitant]
     Active Substance: ATORVASTATIN
  4. IBUPROFEN [Concomitant]
  5. DULOXETINE [Concomitant]
     Active Substance: DULOXETINE
  6. ASPIRIN [Concomitant]
     Active Substance: ASPIRIN
  7. OMEPRAZOLE [Concomitant]
     Active Substance: OMEPRAZOLE
  8. AMLODIPINE [Concomitant]
  9. METOPROLOL SUCCINATE [Concomitant]

REACTIONS (1)
  - Disease progression [None]

NARRATIVE: CASE EVENT DATE: 20240808
